FAERS Safety Report 5401906-7 (Version None)
Quarter: 2007Q3

REPORT INFORMATION
  Report Type: 
  Country: None (occurrence: None)
  Receive Date: 20070726
  Receipt Date: 20070702
  Transmission Date: 20080115
  Serious: Yes (Other)
  Sender: FDA-Public Use
  Company Number: 6035207

PATIENT
  Age: 15 Year
  Sex: Female

DRUGS (4)
  1. TACROLIMUS [Suspect]
     Indication: IMMUNOSUPPRESSION
  2. CLARITHROMYCIN [Suspect]
     Indication: HELICOBACTER GASTRITIS
  3. AMOXICILLIN [Concomitant]
  4. OMEPRAZOLE [Concomitant]

REACTIONS (8)
  - CONVULSION [None]
  - DEHYDRATION [None]
  - DIARRHOEA [None]
  - DRUG INTERACTION [None]
  - HAEMOCONCENTRATION [None]
  - OLIGURIA [None]
  - RENAL DISORDER [None]
  - VOMITING [None]
